FAERS Safety Report 25635298 (Version 1)
Quarter: 2025Q3

REPORT INFORMATION
  Report Type: Spontaneous
  Country: EU (occurrence: EU)
  Receive Date: 20250802
  Receipt Date: 20250802
  Transmission Date: 20251020
  Serious: Yes (Hospitalization, Other)
  Sender: NOVITIUM PHARMA
  Company Number: EU-NOVITIUMPHARMA-2025PLNVP01863

PATIENT
  Age: 61 Year
  Sex: Male

DRUGS (3)
  1. PREDNISONE [Suspect]
     Active Substance: PREDNISONE
     Indication: Cardiac sarcoidosis
  2. PREDNISONE [Suspect]
     Active Substance: PREDNISONE
     Dosage: DOSE REDUCED
  3. PREDNISONE [Suspect]
     Active Substance: PREDNISONE

REACTIONS (3)
  - Hepatitis B reactivation [Recovering/Resolving]
  - Diabetes mellitus [Recovering/Resolving]
  - Hypertension [Recovering/Resolving]
